FAERS Safety Report 9558519 (Version 1)
Quarter: 2013Q3

REPORT INFORMATION
  Report Type: Spontaneous
  Country: FR (occurrence: FR)
  Receive Date: 20130926
  Receipt Date: 20130926
  Transmission Date: 20140515
  Serious: Yes (Other)
  Sender: FDA-Public Use
  Company Number: PHHY2013FR106023

PATIENT
  Age: 2 Year
  Sex: Female
  Weight: 11 kg

DRUGS (8)
  1. WARFARIN [Suspect]
     Dosage: 2 MG/KG
  2. WARFARIN [Interacting]
     Dosage: 0.2 MG/KG, UNK
  3. WARFARIN [Interacting]
     Dosage: 6 MG/KG, DAY 6
  4. WARFARIN [Interacting]
     Dosage: 25 MG/KG, WEEKLY
  5. WARFARIN [Interacting]
     Dosage: 51 MG, WEEKLY, DAY 137
  6. AMIODARONE [Interacting]
     Indication: ARRHYTHMIA SUPRAVENTRICULAR
     Dosage: 500 MG/M2, DAILY FOR 7 DAYS
  7. AMIODARONE [Interacting]
     Dosage: 250 MG/M2, DAILY
  8. ENOXAPARIN SODIUM [Concomitant]
     Dosage: 1200 IU, BID

REACTIONS (3)
  - International normalised ratio abnormal [Unknown]
  - Coagulation time shortened [Unknown]
  - Drug interaction [Unknown]
